FAERS Safety Report 12618572 (Version 3)
Quarter: 2017Q1

REPORT INFORMATION
  Report Type: Spontaneous
  Country: US (occurrence: US)
  Receive Date: 20160803
  Receipt Date: 20170105
  Transmission Date: 20170428
  Serious: Yes (Other)
  Sender: FDA-Public Use
  Company Number: US-ASTRAZENECA-2016SE81084

PATIENT
  Sex: Female

DRUGS (5)
  1. OXYGEN. [Concomitant]
     Active Substance: OXYGEN
  2. DIOVAN [Concomitant]
     Active Substance: VALSARTAN
  3. SYMBICORT [Suspect]
     Active Substance: BUDESONIDE\FORMOTEROL FUMARATE DIHYDRATE
     Indication: CHRONIC OBSTRUCTIVE PULMONARY DISEASE
     Dosage: 160/4.5 MCG 2 PUFFS IN THE MORNING AND 2 PUFFS AT NIGHT
     Route: 055
     Dates: start: 20150723
  4. CLONIDINE. [Concomitant]
     Active Substance: CLONIDINE
  5. ZOLOFT [Concomitant]
     Active Substance: SERTRALINE HYDROCHLORIDE

REACTIONS (7)
  - Dyspnoea [Unknown]
  - Lung disorder [Unknown]
  - Device malfunction [Unknown]
  - Drug ineffective [Unknown]
  - Nasopharyngitis [Unknown]
  - Dysphonia [Unknown]
  - Visual acuity reduced [Unknown]
